FAERS Safety Report 9326343 (Version 3)
Quarter: 2013Q2

REPORT INFORMATION
  Report Type: Report from Study
  Country: US (occurrence: US)
  Receive Date: 20130604
  Receipt Date: 20130606
  Transmission Date: 20140414
  Serious: Yes (Other)
  Sender: FDA-Public Use
  Company Number: US-ABBOTT-13P-163-1097188-00

PATIENT
  Age: 45 Year
  Sex: Female

DRUGS (3)
  1. HUMIRA [Suspect]
     Indication: CROHN^S DISEASE
     Dates: start: 20130510, end: 20130510
  2. HUMIRA [Suspect]
     Dates: start: 20130525
  3. IRON SUPPLEMENT [Concomitant]
     Indication: ANAEMIA
     Dosage: DAILY

REACTIONS (3)
  - Haemoglobin decreased [Not Recovered/Not Resolved]
  - Injection site pain [Unknown]
  - Injection site bruising [Unknown]
